FAERS Safety Report 7298230-7 (Version None)
Quarter: 2011Q1

REPORT INFORMATION
  Report Type: 
  Country: None (occurrence: None)
  Receive Date: 20110217
  Receipt Date: 20101223
  Transmission Date: 20110831
  Serious: Yes (Hospitalization, Other)
  Sender: FDA-Public Use
  Company Number: US-BAYER-201027525NA

PATIENT
  Sex: Female
  Weight: 80 kg

DRUGS (9)
  1. YASMIN [Suspect]
     Indication: PRODUCT USED FOR UNKNOWN INDICATION
     Route: 048
     Dates: start: 20060601
  2. OCELLA [Suspect]
     Indication: PRODUCT USED FOR UNKNOWN INDICATION
     Route: 048
     Dates: start: 20060601
  3. KEFLEX [Concomitant]
     Indication: CELLULITIS
     Dosage: 500 MG (DAILY DOSE), ,
  4. YAZ [Suspect]
     Indication: CONTRACEPTION
     Route: 048
     Dates: start: 20060601, end: 20070401
  5. MOTRIN [Concomitant]
     Indication: PAIN
     Dosage: 800 MG (DAILY DOSE), ,
     Dates: start: 20070403
  6. VIBRAMYCIN [Concomitant]
     Indication: CELLULITIS
     Dosage: 100 MG (DAILY DOSE), ,
     Dates: start: 20070403
  7. ANCEF [Concomitant]
     Indication: CELLULITIS
     Route: 042
  8. ZOLPIDEM [Concomitant]
     Indication: INSOMNIA
     Dosage: 5 MG (DAILY DOSE), , ORAL
     Route: 048
  9. ACETAMINOPHEN [Concomitant]
     Indication: PAIN
     Dosage: 325 MG (DAILY DOSE), , ORAL
     Route: 048
     Dates: start: 20070404

REACTIONS (4)
  - OEDEMA PERIPHERAL [None]
  - PAIN IN EXTREMITY [None]
  - DEEP VEIN THROMBOSIS [None]
  - RASH [None]
